FAERS Safety Report 24741353 (Version 2)
Quarter: 2025Q1

REPORT INFORMATION
  Report Type: Report from Study
  Country: US (occurrence: US)
  Receive Date: 20241217
  Receipt Date: 20250113
  Transmission Date: 20250408
  Serious: Yes (Hospitalization, Other)
  Sender: ABBVIE
  Company Number: US-ABBVIE-6043689

PATIENT
  Age: 82 Year
  Sex: Female
  Weight: 57.606 kg

DRUGS (1)
  1. HUMIRA [Suspect]
     Active Substance: ADALIMUMAB
     Indication: Uveitis
     Dosage: FORM STRENGTH: 40 MILLIGRAM
     Route: 058
     Dates: start: 20231123

REACTIONS (5)
  - Femur fracture [Unknown]
  - Back pain [Not Recovered/Not Resolved]
  - Fall [Unknown]
  - Limb asymmetry [Recovered/Resolved with Sequelae]
  - Altered state of consciousness [Recovered/Resolved]

NARRATIVE: CASE EVENT DATE: 20231230
